FAERS Safety Report 6300072-3 (Version None)
Quarter: 2009Q3

REPORT INFORMATION
  Report Type: 
  Country: None (occurrence: None)
  Receive Date: 20090806
  Receipt Date: 20090728
  Transmission Date: 20100115
  Serious: Yes (Hospitalization, Other)
  Sender: FDA-Public Use
  Company Number: FR-GILEAD-2008-0019603

PATIENT
  Sex: Male
  Weight: 45 kg

DRUGS (14)
  1. TRUVADA [Suspect]
     Indication: HIV INFECTION
     Route: 048
     Dates: start: 20080709
  2. BACTRIM [Suspect]
     Indication: PROPHYLAXIS
     Route: 048
     Dates: start: 20080624
  3. ROVALCYTE [Suspect]
     Route: 048
     Dates: start: 20080705
  4. KALETRA [Suspect]
     Indication: HIV INFECTION
     Route: 048
     Dates: start: 20080709, end: 20081007
  5. ANZATIPINE [Concomitant]
     Indication: MYCOBACTERIUM AVIUM COMPLEX INFECTION
     Route: 048
     Dates: start: 20080703
  6. MYAMBUTOL [Concomitant]
     Indication: MYCOBACTERIUM AVIUM COMPLEX INFECTION
     Route: 048
     Dates: start: 20080703
  7. ZECLAR [Concomitant]
     Indication: MYCOBACTERIUM AVIUM COMPLEX INFECTION
     Route: 048
     Dates: start: 20080703
  8. DOLIPRANE [Concomitant]
     Indication: PROPHYLAXIS
     Route: 048
     Dates: start: 20080703
  9. FOLINORAL [Concomitant]
     Indication: ANAEMIA
     Route: 048
     Dates: start: 20080704
  10. PRIMPERAN [Concomitant]
     Indication: NAUSEA
     Route: 048
     Dates: start: 20080717
  11. SOLU-MEDROL [Concomitant]
     Dates: start: 20090216
  12. ISENTRESS [Concomitant]
     Indication: HIV INFECTION
     Route: 048
     Dates: start: 20081007
  13. OFLOXACIN [Concomitant]
     Indication: MYCOBACTERIUM AVIUM COMPLEX INFECTION
     Route: 048
     Dates: start: 20081010
  14. TRIFLUCAN [Concomitant]
     Indication: CANDIDIASIS
     Dates: start: 20081215

REACTIONS (8)
  - GENERAL PHYSICAL CONDITION ABNORMAL [None]
  - IMMUNE RECONSTITUTION SYNDROME [None]
  - OESOPHAGEAL CANDIDIASIS [None]
  - ORAL CANDIDIASIS [None]
  - PANCYTOPENIA [None]
  - PERITONITIS [None]
  - RENAL FAILURE [None]
  - TUBULOINTERSTITIAL NEPHRITIS [None]
